FAERS Safety Report 7557428-0 (Version None)
Quarter: 2011Q2

REPORT INFORMATION
  Report Type: 
  Country: None (occurrence: None)
  Receive Date: 20110620
  Receipt Date: 20110607
  Transmission Date: 20111010
  Serious: Yes (Hospitalization)
  Sender: FDA-Public Use
  Company Number: US-ROCHE-782738

PATIENT
  Sex: Female

DRUGS (3)
  1. CARBOPLATIN [Suspect]
     Indication: ENDOMETRIAL CANCER
     Dosage: AUC INTRAVENOUS  OVER 30 MINUTES ON DAY 1 X 6 CYCLES
     Route: 042
  2. IXABEPILONE [Suspect]
     Indication: ENDOMETRIAL CANCER
     Dosage: OVER ONE HOUR ON DAY 1X6 CYCLES
     Route: 042
  3. BEVACIZUMAB [Suspect]
     Indication: ENDOMETRIAL CANCER
     Dosage: OVER 30-90 MINUTES ON DAY 1 (STARTING WITH CYCLE 2 FOR THOSE PTS ENTERING POST SURGERY)
     Route: 042
     Dates: start: 20100422

REACTIONS (6)
  - HYPOALBUMINAEMIA [None]
  - ABDOMINAL INFECTION [None]
  - SKIN ULCER [None]
  - HAEMOGLOBIN DECREASED [None]
  - SEPSIS [None]
  - URINARY TRACT INFECTION [None]
